FAERS Safety Report 8575872 (Version 4)
Quarter: 2012Q4

REPORT INFORMATION
  Report Type: 
  Country: US (occurrence: US)
  Receive Date: 20120523
  Receipt Date: 20121126
  Transmission Date: 20130627
  Serious: Yes (Hospitalization, Other)
  Sender: FDA-Public Use
  Company Number: PHEH2012US010377

PATIENT
  Sex: Female
  Weight: 152 kg

DRUGS (6)
  1. GILENYA [Suspect]
     Dosage: 0.5 mg, daily
     Route: 048
     Dates: start: 20101214
  2. PRISTIQ [Concomitant]
     Dosage: 100 mg, UNK
     Route: 048
  3. CALCIUM WITH VITAMIN D [Concomitant]
     Indication: BONE DISORDER
     Route: 048
  4. HYDROCHLOROTHIAZIDE [Concomitant]
     Indication: HYPERTENSION
     Route: 048
  5. ADDERALL [Concomitant]
     Indication: ATTENTION DEFICIT/HYPERACTIVITY DISORDER
     Dosage: 20 mg, UNK
  6. AVONEX [Concomitant]
     Dosage: UNK UKN, UNK
     Dates: start: 201207

REACTIONS (3)
  - Intestinal obstruction [Recovered/Resolved]
  - Abdominal pain lower [Unknown]
  - Diverticulum [Unknown]
